APPROVED DRUG PRODUCT: CEFOTETAN
Active Ingredient: CEFOTETAN DISODIUM
Strength: EQ 1GM BASE/VIAL
Dosage Form/Route: INJECTABLE;INJECTION
Application: A091031 | Product #001
Applicant: HIKMA FARMACEUTICA PORTUGAL SA
Approved: Oct 26, 2011 | RLD: No | RS: No | Type: DISCN